FAERS Safety Report 7947326-2 (Version None)
Quarter: 2011Q4

REPORT INFORMATION
  Report Type: 
  Country: None (occurrence: None)
  Receive Date: 20111130
  Receipt Date: 20111116
  Transmission Date: 20120403
  Serious: Yes (Hospitalization, Other)
  Sender: FDA-Public Use
  Company Number: SK-PAR PHARMACEUTICAL, INC-2011SCPR003417

PATIENT

DRUGS (2)
  1. DICLOFENAC SODIUM [Suspect]
     Indication: ANKYLOSING SPONDYLITIS
     Dosage: 1-2 DF, UNKNOWN
     Route: 065
  2. IBUPROFEN [Suspect]
     Indication: ANKYLOSING SPONDYLITIS
     Dosage: 2-3 DF
     Route: 065

REACTIONS (4)
  - INTESTINAL POLYP HAEMORRHAGE [None]
  - IRON DEFICIENCY ANAEMIA [None]
  - COLITIS [None]
  - GASTROINTESTINAL TRACT ADENOMA [None]
